FAERS Safety Report 5826731-4 (Version None)
Quarter: 2008Q3

REPORT INFORMATION
  Report Type: 
  Country: None (occurrence: None)
  Receive Date: 20080728
  Receipt Date: 20080728
  Transmission Date: 20090109
  Serious: Yes (Hospitalization)
  Sender: FDA-Public Use
  Company Number: None

PATIENT
  Age: 47 Year
  Sex: Female

DRUGS (3)
  1. MENTHOL/CAMPHOR/PHENOL CARMA-LAB [Suspect]
     Indication: CHAPPED LIPS
     Dosage: THIN AMOUNT ONCE TOP
     Route: 061
     Dates: start: 20070620, end: 20070620
  2. MENTHOL/CAMPHOR/PHENOL CARMA-LAB [Suspect]
     Indication: LIP DRY
     Dosage: THIN AMOUNT ONCE TOP
     Route: 061
     Dates: start: 20070620, end: 20070620
  3. VERAPAMIL [Concomitant]

REACTIONS (1)
  - LIP SWELLING [None]
